FAERS Safety Report 19427258 (Version 2)
Quarter: 2021Q2

REPORT INFORMATION
  Report Type: Spontaneous
  Country: US (occurrence: US)
  Receive Date: 20210617
  Receipt Date: 20210619
  Transmission Date: 20210717
  Serious: No
  Sender: FDA-Public Use
  Company Number: US-UNITED THERAPEUTICS-UNT-2021-011268

PATIENT
  Age: 67 Year
  Sex: Male

DRUGS (2)
  1. TYVASO [Suspect]
     Active Substance: TREPROSTINIL
     Indication: PULMONARY ARTERIAL HYPERTENSION
     Dosage: UNK
     Route: 065
     Dates: start: 20210604
  2. TYVASO [Suspect]
     Active Substance: TREPROSTINIL
     Dosage: 18 ?G, QID
     Route: 065
     Dates: start: 202106, end: 20210615

REACTIONS (2)
  - Dyspnoea [Unknown]
  - Chest discomfort [Unknown]

NARRATIVE: CASE EVENT DATE: 202106
